FAERS Safety Report 4284177-7 (Version None)
Quarter: 2004Q1

REPORT INFORMATION
  Report Type: 
  Country: None (occurrence: None)
  Receive Date: 20040130
  Receipt Date: 20040121
  Transmission Date: 20041129
  Serious: Yes (Life-Threatening)
  Sender: FDA-Public Use
  Company Number: 2004195440ES

PATIENT
  Age: 18 Year
  Sex: Female

DRUGS (2)
  1. LINEZOLID (LINEZOLID) SOLUTION, STERILE [Suspect]
     Indication: OSTEOMYELITIS CHRONIC
     Dosage: 600 MG, BID, IV
     Route: 042
     Dates: end: 20040117
  2. CEFTAZIDIME SODIUM [Concomitant]

REACTIONS (7)
  - COMA [None]
  - DISSEMINATED INTRAVASCULAR COAGULATION [None]
  - HEADACHE [None]
  - HYPERTENSION [None]
  - HYPOTENSION [None]
  - RESPIRATORY DEPRESSION [None]
  - SHOCK [None]
